FAERS Safety Report 12432785 (Version 3)
Quarter: 2016Q3

REPORT INFORMATION
  Report Type: Spontaneous
  Country: IL (occurrence: IL)
  Receive Date: 20160603
  Receipt Date: 20160728
  Transmission Date: 20161109
  Serious: Yes (Death, Hospitalization)
  Sender: FDA-Public Use
  Company Number: IL-UNITED THERAPEUTICS-UNT-2016-008640

PATIENT
  Age: 57 Year
  Sex: Female

DRUGS (2)
  1. REMODULIN [Suspect]
     Active Substance: TREPROSTINIL
     Indication: PULMONARY ARTERIAL HYPERTENSION
     Dosage: UNK
     Route: 041
     Dates: start: 20150910
  2. REMODULIN [Suspect]
     Active Substance: TREPROSTINIL
     Indication: SCLERODERMA
     Dosage: UNK
     Route: 041
     Dates: start: 2014

REACTIONS (5)
  - Gastrointestinal haemorrhage [Fatal]
  - Pain [Unknown]
  - Product use issue [Unknown]
  - Dehydration [Unknown]
  - Asthenia [Unknown]

NARRATIVE: CASE EVENT DATE: 201605
